FAERS Safety Report 19485154 (Version 1)
Quarter: 2021Q3

REPORT INFORMATION
  Report Type: Spontaneous
  Country: FR (occurrence: FR)
  Receive Date: 20210702
  Receipt Date: 20210702
  Transmission Date: 20211014
  Serious: Yes (Other)
  Sender: FDA-Public Use
  Company Number: FR-ORGANON-O2106FRA002615

PATIENT
  Age: 43 Year
  Sex: Female
  Weight: 96 kg

DRUGS (1)
  1. CELESTENE 4MG/1ML [Suspect]
     Active Substance: BETAMETHASONE
     Indication: MENIERE^S DISEASE
     Dosage: 1 DOSAGE FORM, 1 TOTAL (ONCE), STRENGTH: 4 MG/1 ML, ONE INJECTION WITH INTERVAL EACH TIME: 27MAY, 03
     Route: 050
     Dates: start: 20210527, end: 20210527

REACTIONS (3)
  - Vertigo [Recovered/Resolved]
  - Decreased appetite [Recovered/Resolved]
  - Vomiting [Recovered/Resolved]

NARRATIVE: CASE EVENT DATE: 20210529
